FAERS Safety Report 6873451-3 (Version None)
Quarter: 2010Q3

REPORT INFORMATION
  Report Type: 
  Country: None (occurrence: None)
  Receive Date: 20100723
  Receipt Date: 20090121
  Transmission Date: 20110219
  Serious: No
  Sender: FDA-Public Use
  Company Number: US-PFIZER INC-2009160814

PATIENT
  Sex: Female
  Weight: 72 kg

DRUGS (4)
  1. CHANTIX [Suspect]
     Dates: start: 20080101, end: 20080101
  2. CRESTOR [Concomitant]
     Dosage: UNK
  3. NEXIUM [Concomitant]
     Dosage: UNK
  4. CITALOPRAM [Concomitant]
     Dosage: UNK

REACTIONS (2)
  - ABNORMAL DREAMS [None]
  - NAUSEA [None]
